FAERS Safety Report 10061991 (Version 3)
Quarter: 2014Q2

REPORT INFORMATION
  Report Type: Spontaneous
  Country: US (occurrence: None)
  Receive Date: 20140403
  Receipt Date: 20140508
  Transmission Date: 20141212
  Serious: Yes (Hospitalization)
  Sender: FDA-Public Use
  Company Number: UTC-046501

PATIENT
  Age: 55 Year
  Sex: Female
  Weight: 63.5 kg

DRUGS (2)
  1. TYVASO [Suspect]
     Indication: COR PULMONALE CHRONIC
     Dosage: 216 MCG  (54 MCG, 4 IN 1 D), INHALATION
     Route: 055
     Dates: start: 20120514
  2. COUMADIN (WARFARIN SODIUM) [Concomitant]

REACTIONS (14)
  - Gastrointestinal infection [None]
  - Pyrexia [None]
  - Vomiting [None]
  - Nausea [None]
  - Pharyngitis [None]
  - Dry throat [None]
  - Fungal infection [None]
  - Dysgeusia [None]
  - Colitis [None]
  - Throat irritation [None]
  - Oesophageal candidiasis [None]
  - Oesophageal disorder [None]
  - Dysgeusia [None]
  - Gastrointestinal disorder [None]
